FAERS Safety Report 7404407-X (Version None)
Quarter: 2011Q2

REPORT INFORMATION
  Report Type: 
  Country: None (occurrence: None)
  Receive Date: 20110408
  Receipt Date: 20110331
  Transmission Date: 20111010
  Serious: Yes (Hospitalization)
  Sender: FDA-Public Use
  Company Number: US-ABBOTT-11P-163-0717272-01

PATIENT
  Sex: Female

DRUGS (6)
  1. HUMIRA [Suspect]
     Indication: CROHN'S DISEASE
     Dosage: 160 MG(BASELINE)
     Route: 058
     Dates: start: 20091218, end: 20091218
  2. PREDNISONE [Concomitant]
     Dates: start: 20090801
  3. HUMIRA [Suspect]
  4. PREDNISONE [Concomitant]
     Indication: CROHN'S DISEASE
  5. HUMIRA [Suspect]
     Dosage: WEEK 2
  6. PRILOSEC [Concomitant]
     Indication: GASTROOESOPHAGEAL REFLUX DISEASE
     Dates: start: 20070101

REACTIONS (1)
  - INTESTINAL RESECTION [None]
